FAERS Safety Report 8702380 (Version 2)
Quarter: 2012Q4

REPORT INFORMATION
  Report Type: 
  Country: US (occurrence: US)
  Receive Date: 20120803
  Receipt Date: 20120823
  Transmission Date: 20130627
  Serious: Yes (Other)
  Sender: FDA-Public Use
  Company Number: US-ELI_LILLY_AND_COMPANY-US201104003410

PATIENT
  Age: 81 None
  Sex: Female

DRUGS (8)
  1. FORTEO [Suspect]
     Indication: OSTEOPOROSIS
     Dosage: 20 ug, qd
     Dates: start: 20110115
  2. FORTEO [Suspect]
     Dosage: 20 ug, qd
  3. FORTEO [Suspect]
     Dosage: 20 ug, qd
     Dates: end: 20120726
  4. EVISTA [Suspect]
     Indication: OSTEOPOROSIS
     Dosage: 60 mg, qd
     Dates: start: 2004
  5. HYDROCHLOROTHIAZIDE [Concomitant]
     Dosage: 25 mg, qd
  6. IRBESARTAN [Concomitant]
     Dosage: 300 mg, qd
  7. VITAMINS [Concomitant]
  8. CALCIUM [Concomitant]
     Dosage: UNK

REACTIONS (3)
  - Basal cell carcinoma [Unknown]
  - Basal cell carcinoma [Unknown]
  - Drug dose omission [Recovered/Resolved]
